FAERS Safety Report 21504639 (Version 1)
Quarter: 2022Q4

REPORT INFORMATION
  Report Type: Spontaneous
  Country: US (occurrence: US)
  Receive Date: 20221025
  Receipt Date: 20221025
  Transmission Date: 20230112
  Serious: Yes (Hospitalization, Other)
  Sender: FDA-Public Use
  Company Number: US-TRIS PHARMA, INC.-22US010501

PATIENT

DRUGS (1)
  1. QUILLIVANT XR [Suspect]
     Active Substance: METHYLPHENIDATE HYDROCHLORIDE
     Indication: Attention deficit hyperactivity disorder
     Dosage: UNK

REACTIONS (6)
  - Unresponsive to stimuli [Recovering/Resolving]
  - Intentional self-injury [Unknown]
  - Abnormal behaviour [Recovering/Resolving]
  - Affect lability [Unknown]
  - Restlessness [Recovering/Resolving]
  - Overdose [Recovering/Resolving]
